FAERS Safety Report 23693607 (Version 1)
Quarter: 2024Q2

REPORT INFORMATION
  Report Type: Report from Study
  Country: DE (occurrence: DE)
  Receive Date: 20240401
  Receipt Date: 20240401
  Transmission Date: 20240716
  Serious: Yes (Hospitalization)
  Sender: FDA-Public Use
  Company Number: DE-SOCIETAL CDMO GAINESVILLE, LLC-SOC-2024-000006

PATIENT
  Age: 8 Week

DRUGS (2)
  1. VERAPAMIL HYDROCHLORIDE [Suspect]
     Active Substance: VERAPAMIL HYDROCHLORIDE
     Indication: Ventricular tachycardia
     Dosage: 0.1 MILLIGRAM/KILOGRAM, UNK
     Route: 042
  2. VERAPAMIL HYDROCHLORIDE [Suspect]
     Active Substance: VERAPAMIL HYDROCHLORIDE
     Dosage: UP TO 0.3 MILLIGRAM/KILOGRAM, QH
     Route: 042

REACTIONS (1)
  - Haemodynamic instability [Unknown]
